FAERS Safety Report 19307602 (Version 1)
Quarter: 2021Q2

REPORT INFORMATION
  Report Type: Spontaneous
  Country: JP (occurrence: JP)
  Receive Date: 20210526
  Receipt Date: 20210526
  Transmission Date: 20210717
  Serious: Yes (Other)
  Sender: FDA-Public Use
  Company Number: NVSJ2021JP007460

PATIENT
  Sex: Male

DRUGS (2)
  1. TAKECAB [Concomitant]
     Active Substance: VONOPRAZAN FUMARATE
     Indication: PRODUCT USED FOR UNKNOWN INDICATION
     Dosage: UNK
     Route: 048
  2. VOLTAREN SUP [Suspect]
     Active Substance: DICLOFENAC SODIUM
     Indication: CANCER PAIN
     Dosage: UNK
     Route: 054

REACTIONS (6)
  - Haematemesis [Unknown]
  - Concomitant disease progression [Unknown]
  - Product use in unapproved indication [Unknown]
  - Gastric cancer [Unknown]
  - Dysphagia [Unknown]
  - Pyrexia [Unknown]
